FAERS Safety Report 5958524-1 (Version None)
Quarter: 2008Q4

REPORT INFORMATION
  Report Type: 
  Country: None (occurrence: None)
  Receive Date: 20081119
  Receipt Date: 20081107
  Transmission Date: 20090506
  Serious: Yes (Death)
  Sender: FDA-Public Use
  Company Number: US-PFIZER INC-2008022080

PATIENT
  Sex: Male
  Weight: 118 kg

DRUGS (4)
  1. SUTENT [Suspect]
     Indication: METASTATIC RENAL CELL CARCINOMA
     Route: 048
     Dates: start: 20080219, end: 20080304
  2. VALSARTAN [Concomitant]
     Route: 048
     Dates: start: 20070927
  3. LIPITOR [Concomitant]
     Route: 048
     Dates: start: 20070924
  4. GLIPIZIDE [Concomitant]
     Route: 048
     Dates: start: 20070924

REACTIONS (2)
  - DISEASE PROGRESSION [None]
  - METASTATIC RENAL CELL CARCINOMA [None]
